FAERS Safety Report 8098016-X (Version None)
Quarter: 2012Q1

REPORT INFORMATION
  Report Type: 
  Country: None (occurrence: None)
  Receive Date: 20120128
  Receipt Date: 20110831
  Transmission Date: 20120608
  Serious: Yes (Other)
  Sender: FDA-Public Use
  Company Number: US-ABBOTT-11P-163-0842001-00

PATIENT
  Age: 57 Year
  Sex: Female

DRUGS (10)
  1. HUMIRA [Suspect]
     Indication: CROHN'S DISEASE
     Dates: start: 20060501
  2. OMEPRAZOLE [Concomitant]
     Indication: GASTROOESOPHAGEAL REFLUX DISEASE
     Route: 048
  3. NORVASC [Concomitant]
     Indication: HYPERTENSION
     Route: 048
  4. LYRICA [Concomitant]
     Indication: FIBROMYALGIA
     Route: 048
  5. METHSCOPOLAMINE [Concomitant]
     Indication: FAT REDISTRIBUTION
  6. ASACOL [Concomitant]
     Indication: CROHN'S DISEASE
     Route: 048
     Dates: start: 20020101
  7. BENAZEPRIL HYDROCHLORIDE [Concomitant]
     Indication: HYPERTENSION
     Route: 048
  8. CITALOPRAM [Concomitant]
     Indication: DEPRESSION
     Route: 048
  9. ASSORTED VITAMINS [Concomitant]
     Indication: PRODUCT USED FOR UNKNOWN INDICATION
     Route: 048
  10. DICLOFENAC [Concomitant]
     Indication: CROHN'S DISEASE
     Route: 048

REACTIONS (4)
  - CHOLECYSTECTOMY [None]
  - ABDOMINAL PAIN [None]
  - DIARRHOEA [None]
  - CROHN'S DISEASE [None]
